FAERS Safety Report 9911585 (Version 2)
Quarter: 2014Q1

REPORT INFORMATION
  Report Type: Spontaneous
  Country: NL (occurrence: NL)
  Receive Date: 20140219
  Receipt Date: 20140219
  Transmission Date: 20141002
  Serious: Yes (Other)
  Sender: FDA-Public Use
  Company Number: PHHY2014NL012507

PATIENT
  Sex: Male

DRUGS (3)
  1. RITALIN [Suspect]
     Dosage: 25 MG, BID
     Dates: start: 20140127
  2. RITALIN [Suspect]
     Dosage: UNK UKN, UNK
  3. RITALIN [Suspect]
     Dosage: 30 MG, UNK

REACTIONS (10)
  - Intentional drug misuse [Unknown]
  - Feeling abnormal [Unknown]
  - Anger [Unknown]
  - Euphoric mood [Unknown]
  - Dehydration [Unknown]
  - Speech disorder [Unknown]
  - Abnormal behaviour [Unknown]
  - Insomnia [Unknown]
  - Restlessness [Not Recovered/Not Resolved]
  - Agitation [Unknown]
